FAERS Safety Report 8344023 (Version 2)
Quarter: 2013Q2

REPORT INFORMATION
  Report Type: Spontaneous
  Country: US (occurrence: None)
  Receive Date: 20111202
  Receipt Date: 20121203
  Transmission Date: 20140414
  Serious: Yes (Hospitalization, Disabling, Other)
  Sender: FDA-Public Use
  Company Number: 2011SP000372

PATIENT
  Age: 47 Year
  Sex: Female
  Weight: 85.7 kg

DRUGS (3)
  1. NUVARING (ETONOGESTREL (+) ETHINYL ESTRADIOL) VAGINAL RING [Suspect]
     Indication: CONTRACEPTION
     Route: 067
     Dates: start: 200605, end: 20090119
  2. IBUPROFEN (IBUPROFEN) [Concomitant]
  3. KLONOPIN (CLONAZEPAM) (TABLETS) [Concomitant]

REACTIONS (8)
  - CEREBROVASCULAR ACCIDENT [None]
  - ISCHAEMIC STROKE [None]
  - VIIth nerve paralysis [None]
  - Anxiety [None]
  - Gastrooesophageal reflux disease [None]
  - Affective disorder [None]
  - Migraine [None]
  - Depression [None]
